FAERS Safety Report 8478762 (Version 5)
Quarter: 2013Q1

REPORT INFORMATION
  Report Type: Report from Study
  Country: SE (occurrence: SE)
  Receive Date: 20120327
  Receipt Date: 20130104
  Transmission Date: 20140127
  Serious: Yes (Death, Hospitalization)
  Sender: FDA-Public Use
  Company Number: SE-TEVA-327925USA

PATIENT
  Age: 82 Year
  Sex: Male
  Weight: 81.2 kg

DRUGS (13)
  1. TREANDA [Suspect]
     Indication: CHRONIC LYMPHOCYTIC LEUKAEMIA
     Route: 042
     Dates: start: 20110909
  2. RITUXIMAB [Suspect]
     Indication: CHRONIC LYMPHOCYTIC LEUKAEMIA
     Dosage: EVERY 4 WEEKS
     Route: 042
     Dates: start: 20110909
  3. WARFARIN [Concomitant]
     Dates: start: 20000626
  4. FUROSEMIDE [Concomitant]
     Dates: start: 20000831
  5. BISOPROLOL [Concomitant]
     Dates: start: 20000831
  6. CANDESARTAN [Concomitant]
     Dates: start: 20000831
  7. FESOTERODINE [Concomitant]
     Dates: start: 20091104
  8. FINASTERIDE [Concomitant]
     Dates: start: 2004
  9. ZOPICLONE [Concomitant]
     Dates: start: 2011
  10. CITALOPRAM [Concomitant]
     Dates: start: 20041228
  11. CIPROFLOXACIN [Concomitant]
     Dates: start: 20120220, end: 20120229
  12. FOLSYRA [Concomitant]
     Dates: start: 20120221
  13. SPIRONOLACTONE [Concomitant]
     Dates: start: 20000831

REACTIONS (4)
  - Neurological symptom [Fatal]
  - Coronary artery disease [Fatal]
  - Polyneuropathy [Not Recovered/Not Resolved]
  - Febrile neutropenia [Fatal]
